FAERS Safety Report 25030620 (Version 3)
Quarter: 2025Q2

REPORT INFORMATION
  Report Type: Spontaneous
  Country: CA (occurrence: CA)
  Receive Date: 20250303
  Receipt Date: 20250507
  Transmission Date: 20250717
  Serious: Yes (Death)
  Sender: GILEAD
  Company Number: CA-GILEAD-2025-0705781

PATIENT
  Age: 88 Year
  Sex: Male
  Weight: 79 kg

DRUGS (2)
  1. VEKLURY [Suspect]
     Active Substance: REMDESIVIR
     Indication: COVID-19
     Dosage: 100 MG, QD; 7 DAYS
     Route: 042
     Dates: start: 2024, end: 2024
  2. ACTEMRA [Concomitant]
     Active Substance: TOCILIZUMAB

REACTIONS (1)
  - Hypotension [Fatal]

NARRATIVE: CASE EVENT DATE: 20240101
